FAERS Safety Report 14966788 (Version 1)
Quarter: 2018Q2

REPORT INFORMATION
  Report Type: Spontaneous
  Country: BR (occurrence: BR)
  Receive Date: 20180604
  Receipt Date: 20180604
  Transmission Date: 20180711
  Serious: No
  Sender: FDA-Public Use
  Company Number: BR-CHEPLA-1973060

PATIENT
  Age: 62 Year
  Sex: Female

DRUGS (1)
  1. XENICAL [Suspect]
     Active Substance: ORLISTAT
     Indication: INTESTINAL OBSTRUCTION

REACTIONS (2)
  - Product use in unapproved indication [Unknown]
  - Treatment noncompliance [Unknown]
